FAERS Safety Report 9918664 (Version 1)
Quarter: 2014Q1

REPORT INFORMATION
  Report Type: Report from Study
  Country: BR (occurrence: BR)
  Receive Date: 20140224
  Receipt Date: 20140224
  Transmission Date: 20141002
  Serious: Yes (Other)
  Sender: FDA-Public Use
  Company Number: BR-ROCHE-1353519

PATIENT
  Sex: Female
  Weight: 95 kg

DRUGS (2)
  1. ACTEMRA [Suspect]
     Indication: RHEUMATOID ARTHRITIS
     Dosage: LATEST INFUSION OF 01/JAN/2013
     Route: 065
     Dates: start: 20120112
  2. OLMETEC [Concomitant]

REACTIONS (1)
  - Obesity [Unknown]
